FAERS Safety Report 18305512 (Version 1)
Quarter: 2020Q3

REPORT INFORMATION
  Report Type: Spontaneous
  Country: US (occurrence: US)
  Receive Date: 20200923
  Receipt Date: 20200923
  Transmission Date: 20201103
  Serious: Yes (Death)
  Sender: FDA-Public Use
  Company Number: None

PATIENT
  Sex: Male

DRUGS (9)
  1. LASARTAN POT [Concomitant]
  2. POT CHLORIDE [Concomitant]
     Active Substance: POTASSIUM CHLORIDE
  3. SPRYCEL [Suspect]
     Active Substance: DASATINIB
     Indication: MYELOID LEUKAEMIA IN REMISSION
     Route: 048
     Dates: start: 20180216
  4. FINASTERIDE. [Concomitant]
     Active Substance: FINASTERIDE
  5. INTEGRA [Concomitant]
     Active Substance: DIETARY SUPPLEMENT
  6. ISOSORB [Concomitant]
  7. METOPROLOL TARTRATE. [Concomitant]
     Active Substance: METOPROLOL TARTRATE
  8. BUMETANIDE. [Concomitant]
     Active Substance: BUMETANIDE
  9. ONE TOUCH [Concomitant]
     Active Substance: DEXTROSE

REACTIONS (1)
  - Death [None]
